FAERS Safety Report 11431165 (Version 2)
Quarter: 2015Q4

REPORT INFORMATION
  Report Type: Spontaneous
  Country: US (occurrence: US)
  Receive Date: 20150828
  Receipt Date: 20151030
  Transmission Date: 20160304
  Serious: Yes (Other)
  Sender: FDA-Public Use
  Company Number: US-ELI_LILLY_AND_COMPANY-US201508007898

PATIENT
  Sex: Female

DRUGS (2)
  1. HUMALOG [Suspect]
     Active Substance: INSULIN LISPRO
     Indication: PRODUCT USED FOR UNKNOWN INDICATION
     Route: 065
  2. APIDRA [Concomitant]
     Active Substance: INSULIN GLULISINE

REACTIONS (3)
  - Blood glucose increased [Unknown]
  - Dyspnoea [Unknown]
  - Drug ineffective [Unknown]
